FAERS Safety Report 26071375 (Version 2)
Quarter: 2025Q4

REPORT INFORMATION
  Report Type: Spontaneous
  Country: US (occurrence: US)
  Receive Date: 20251120
  Receipt Date: 20251120
  Transmission Date: 20260118
  Serious: No
  Sender: SEPTODONT
  Company Number: US-SEPTODONT-2025019836

PATIENT
  Age: 17 Year
  Sex: Male

DRUGS (4)
  1. EPINEPHRINE BITARTRATE\LIDOCAINE HYDROCHLORIDE [Suspect]
     Active Substance: EPINEPHRINE BITARTRATE\LIDOCAINE HYDROCHLORIDE
     Indication: Dental local anaesthesia
     Dosage: 2 CARPULES.
     Route: 065
     Dates: start: 20250721, end: 20250721
  2. EPINEPHRINE BITARTRATE\LIDOCAINE HYDROCHLORIDE [Suspect]
     Active Substance: EPINEPHRINE BITARTRATE\LIDOCAINE HYDROCHLORIDE
     Indication: Dental local anaesthesia
     Dosage: 6 CARPULES.
     Route: 065
     Dates: start: 20250721, end: 20250721
  3. 27Ga Long Needle [Concomitant]
  4. Standard Syringe [Concomitant]

REACTIONS (3)
  - Drug effect less than expected [Unknown]
  - Injection site swelling [Unknown]
  - Procedural pain [Unknown]

NARRATIVE: CASE EVENT DATE: 20250721
